FAERS Safety Report 20451563 (Version 1)
Quarter: 2022Q1

REPORT INFORMATION
  Report Type: Spontaneous
  Country: US (occurrence: US)
  Receive Date: 20220209
  Receipt Date: 20220209
  Transmission Date: 20220423
  Serious: No
  Sender: FDA-Public Use
  Company Number: US-NOVARTISTESTPH-NVSC2021US143128

PATIENT
  Sex: Female

DRUGS (1)
  1. PATADAY [Suspect]
     Active Substance: OLOPATADINE HYDROCHLORIDE
     Indication: Eye allergy
     Dosage: UNK UNK, QD
     Route: 047

REACTIONS (5)
  - Eye discharge [Unknown]
  - Ocular discomfort [Unknown]
  - Product physical consistency issue [Unknown]
  - Product dispensing error [Unknown]
  - Product selection error [Unknown]
